FAERS Safety Report 5070033-3 (Version None)
Quarter: 2006Q3

REPORT INFORMATION
  Report Type: 
  Country: None (occurrence: None)
  Receive Date: 20060731
  Receipt Date: 20060718
  Transmission Date: 20061208
  Serious: Yes (Hospitalization)
  Sender: FDA-Public Use
  Company Number: 2006089347

PATIENT
  Age: 57 Year
  Sex: Male
  Weight: 132.8 kg

DRUGS (2)
  1. SUTENT [Suspect]
     Indication: RENAL CELL CARCINOMA STAGE UNSPECIFIED
     Dosage: 50 MG (50 MG, DAILY- INTERVAL: CYCLIC), ORAL
     Route: 048
     Dates: start: 20060523, end: 20060717
  2. DRUG, UNSPECIFIED [Concomitant]

REACTIONS (4)
  - CONFUSIONAL STATE [None]
  - INFECTION [None]
  - PYREXIA [None]
  - RASH GENERALISED [None]
